FAERS Safety Report 8990659 (Version 1)
Quarter: 2012Q4

REPORT INFORMATION
  Report Type: 
  Country: DK (occurrence: JP)
  Receive Date: 20121228
  Receipt Date: 20121228
  Transmission Date: 20130627
  Serious: Yes (Other)
  Sender: FDA-Public Use
  Company Number: JP-FRI-1000025239

PATIENT
  Age: 38 Year
  Sex: Female
  Weight: 39 kg

DRUGS (1)
  1. LEXAPRO [Suspect]
     Indication: PANIC DISORDER
     Dosage: 10 mg
     Route: 048
     Dates: start: 20111003

REACTIONS (1)
  - Hyperventilation [Recovered/Resolved with Sequelae]
